FAERS Safety Report 8943406 (Version 1)
Quarter: 2012Q4

REPORT INFORMATION
  Report Type: 
  Country: CH (occurrence: CH)
  Receive Date: 20121204
  Receipt Date: 20121204
  Transmission Date: 20130627
  Serious: Yes (Death, Other)
  Sender: FDA-Public Use
  Company Number: CH-JNJFOC-20121200057

PATIENT

DRUGS (2)
  1. DOXORUBICIN HYDROCHLORIDE (CAELYX) [Suspect]
     Indication: MYCOSIS FUNGOIDES
     Dosage: 1 hour infusion on days 1 and 15
     Route: 042
  2. ANTIEMETICS [Concomitant]
     Indication: PROPHYLAXIS
     Route: 065

REACTIONS (12)
  - Mycosis fungoides [Fatal]
  - Infection [Fatal]
  - Myocardial infarction [Fatal]
  - Nonspecific reaction [Unknown]
  - Mycosis fungoides [Unknown]
  - Skin toxicity [Unknown]
  - Gastrointestinal toxicity [Unknown]
  - Infection [Unknown]
  - Middle ear inflammation [Unknown]
  - Neutropenia [Unknown]
  - Leukopenia [Unknown]
  - Anaemia [Unknown]
